FAERS Safety Report 4659776-0 (Version None)
Quarter: 2005Q2

REPORT INFORMATION
  Report Type: 
  Country: None (occurrence: None)
  Receive Date: 20050512
  Receipt Date: 20050502
  Transmission Date: 20051028
  Serious: Yes (Death, Hospitalization)
  Sender: FDA-Public Use
  Company Number: AT-JNJFOC-20050500427

PATIENT
  Age: 56 Year
  Sex: Male

DRUGS (4)
  1. INFLIXIMAB [Suspect]
     Dosage: SECOND INFUSION; ADMINISTERED 2 WWEKS AFTER FIRST INFUSION
     Route: 042
  2. INFLIXIMAB [Suspect]
     Indication: ERYTHRODERMIC PSORIASIS
     Dosage: FIRST INFUSION
     Route: 042
  3. PREDNISOLONE [Suspect]
     Dosage: DIVIDED DOSES
  4. PREDNISOLONE [Suspect]
     Indication: ERYTHRODERMIC PSORIASIS

REACTIONS (10)
  - DIABETES MELLITUS [None]
  - DIFFICULTY IN WALKING [None]
  - HEPATITIS B [None]
  - HYPERADRENOCORTICISM [None]
  - MULTI-ORGAN FAILURE [None]
  - MYOPATHY [None]
  - NOSOCOMIAL INFECTION [None]
  - OSTEOPOROSIS [None]
  - PNEUMONIA LEGIONELLA [None]
  - SEPTIC SHOCK [None]
